FAERS Safety Report 7786443-7 (Version None)
Quarter: 2011Q3

REPORT INFORMATION
  Report Type: 
  Country: None (occurrence: None)
  Receive Date: 20110927
  Receipt Date: 20110927
  Transmission Date: 20111222
  Serious: Yes (Other)
  Sender: FDA-Public Use
  Company Number: None

PATIENT
  Sex: Female

DRUGS (2)
  1. CREST PROHEALTH PROCARE CLINICAL GUM PROTECTION TOOTHPASTE [Suspect]
     Indication: DENTAL DISORDER PROPHYLAXIS
     Dates: start: 20110804, end: 20110820
  2. MELAEUCA MOUTH WASH [Concomitant]

REACTIONS (6)
  - HYPOAESTHESIA ORAL [None]
  - SWELLING [None]
  - ORAL MUCOSAL EXFOLIATION [None]
  - CHEMICAL INJURY [None]
  - EATING DISORDER SYMPTOM [None]
  - SENSORY DISTURBANCE [None]
